FAERS Safety Report 8004772-9 (Version None)
Quarter: 2011Q4

REPORT INFORMATION
  Report Type: 
  Country: None (occurrence: None)
  Receive Date: 20111223
  Receipt Date: 20111212
  Transmission Date: 20120403
  Serious: Yes (Hospitalization)
  Sender: FDA-Public Use
  Company Number: GB-BRISTOL-MYERS SQUIBB COMPANY-16284259

PATIENT
  Age: 53 Year
  Sex: Female

DRUGS (4)
  1. TENOFOVIR [Interacting]
     Indication: HIV INFECTION
  2. ATAZANAVIR [Suspect]
     Indication: HIV INFECTION
  3. RITONAVIR [Interacting]
     Indication: HIV INFECTION
  4. TACROLIMUS [Interacting]

REACTIONS (5)
  - SOMNOLENCE [None]
  - AMNESIA [None]
  - RENAL TUBULAR NECROSIS [None]
  - BLOOD BILIRUBIN INCREASED [None]
  - DRUG INTERACTION [None]
